FAERS Safety Report 24729620 (Version 1)
Quarter: 2024Q4

REPORT INFORMATION
  Report Type: Spontaneous
  Country: US (occurrence: US)
  Receive Date: 20241213
  Receipt Date: 20241213
  Transmission Date: 20250115
  Serious: Yes (Other)
  Sender: BRISTOL-MYERS SQUIBB COMPANY
  Company Number: US-BRISTOL-MYERS SQUIBB COMPANY-2024-191107

PATIENT
  Age: 67 Year
  Sex: Male
  Weight: 92.08 kg

DRUGS (1)
  1. ONUREG [Suspect]
     Active Substance: AZACITIDINE
     Indication: Acute myelomonocytic leukaemia
     Dosage: ONCE DAILY DAYS 1-14 OF 28 DAYS
     Route: 048

REACTIONS (1)
  - Acute myeloid leukaemia recurrent [Not Recovered/Not Resolved]
